FAERS Safety Report 5344302-3 (Version None)
Quarter: 2007Q2

REPORT INFORMATION
  Report Type: 
  Country: None (occurrence: None)
  Receive Date: 20070604
  Receipt Date: 20070529
  Transmission Date: 20071010
  Serious: Yes (Life-Threatening, Hospitalization)
  Sender: FDA-Public Use
  Company Number: GB-ASTRAZENECA-2007GB01129

PATIENT
  Age: 24 Year
  Sex: Female

DRUGS (5)
  1. SEROQUEL [Suspect]
     Route: 048
  2. FLUOXETINE [Concomitant]
  3. LEVOTHYROXINE SODIUM [Concomitant]
  4. VALPROATE SODIUM [Concomitant]
  5. AUGMENTIN '125' [Concomitant]

REACTIONS (7)
  - ACIDOSIS [None]
  - BLOOD PRESSURE DECREASED [None]
  - DEPRESSED LEVEL OF CONSCIOUSNESS [None]
  - EPILEPSY [None]
  - OVERDOSE [None]
  - OXYGEN SATURATION DECREASED [None]
  - TACHYCARDIA [None]
